FAERS Safety Report 7560293-9 (Version None)
Quarter: 2011Q2

REPORT INFORMATION
  Report Type: 
  Country: None (occurrence: None)
  Receive Date: 20110621
  Receipt Date: 20110609
  Transmission Date: 20111010
  Serious: Yes (Hospitalization)
  Sender: FDA-Public Use
  Company Number: SE-ASTRAZENECA-2011SE36895

PATIENT
  Age: 81 Year
  Sex: Female

DRUGS (16)
  1. SPIRONOLACTONE [Suspect]
     Indication: MYOCARDIAL INFARCTION
     Route: 048
     Dates: start: 20110126
  2. DIGOXIN [Interacting]
     Indication: MYOCARDIAL INFARCTION
     Route: 048
     Dates: start: 20011019
  3. ISOPTIN [Interacting]
     Indication: MYOCARDIAL INFARCTION
     Route: 048
  4. ACETAMINOPHEN [Concomitant]
  5. WARAN [Concomitant]
  6. OMEPRAZOLE [Concomitant]
  7. METOPROLOL SANDOZ [Concomitant]
  8. BEHEPAN [Concomitant]
  9. DUROFERON [Concomitant]
  10. ATACAND [Suspect]
     Indication: MYOCARDIAL INFARCTION
     Route: 048
  11. VISCOTEARS [Concomitant]
     Dosage: 2 MG/G
  12. NOVORAPID [Concomitant]
  13. LANTUS [Concomitant]
  14. SIMVASTATIN [Concomitant]
  15. ZOPIKLON MYLAN [Concomitant]
  16. FUROSEMIDE [Concomitant]

REACTIONS (3)
  - RENAL FAILURE [None]
  - DRUG THERAPEUTIC INCOMPATIBILITY [None]
  - HYPERKALAEMIA [None]
